FAERS Safety Report 7272775-8 (Version None)
Quarter: 2010Q4

REPORT INFORMATION
  Report Type: 
  Country: None (occurrence: None)
  Receive Date: 20101208
  Receipt Date: 20100804
  Transmission Date: 20110411
  Serious: Yes (Hospitalization)
  Sender: FDA-Public Use
  Company Number: 1000014267

PATIENT
  Age: 76 Year
  Sex: Male

DRUGS (13)
  1. NAMENDA [Suspect]
     Indication: DEMENTIA
     Dosage: SEE IMAGE
     Route: 048
     Dates: start: 20100501, end: 20100501
  2. NAMENDA [Suspect]
     Indication: DEMENTIA
     Dosage: SEE IMAGE
     Route: 048
     Dates: start: 20100501, end: 20100501
  3. NAMENDA [Suspect]
     Indication: DEMENTIA
     Dosage: SEE IMAGE
     Route: 048
     Dates: start: 20100501, end: 20100501
  4. NAMENDA [Suspect]
     Indication: DEMENTIA
     Dosage: 20 MG ( 10 MG, 2 IN 1 D), ORAL
     Route: 048
     Dates: start: 20100501, end: 20100603
  5. ARICEPT [Concomitant]
  6. AVAPRO [Concomitant]
  7. ZOCOR [Concomitant]
  8. FUROSEMIDE [Concomitant]
  9. PLAVIX [Concomitant]
  10. TOPROL-XL [Concomitant]
  11. PAXIL [Concomitant]
  12. POTASSIUM [Concomitant]
  13. MULTIVITAMIN [Concomitant]

REACTIONS (2)
  - LETHARGY [None]
  - PULMONARY OEDEMA [None]
